FAERS Safety Report 8304574-X (Version None)
Quarter: 2012Q2

REPORT INFORMATION
  Report Type: 
  Country: None (occurrence: None)
  Receive Date: 20120423
  Receipt Date: 20120412
  Transmission Date: 20120825
  Serious: Yes (Other)
  Sender: FDA-Public Use
  Company Number: SE-GLAXOSMITHKLINE-B0796045A

PATIENT
  Age: 12 Year
  Sex: Female
  Weight: 34 kg

DRUGS (1)
  1. LAMICTAL [Suspect]
     Indication: EPILEPSY
     Dosage: 5MG TWICE PER DAY
     Route: 065

REACTIONS (20)
  - POLLAKIURIA [None]
  - EYE PAIN [None]
  - DRY MOUTH [None]
  - NAUSEA [None]
  - HALLUCINATION [None]
  - PYREXIA [None]
  - MALAISE [None]
  - RASH ERYTHEMATOUS [None]
  - VOMITING [None]
  - DIZZINESS [None]
  - RASH [None]
  - FATIGUE [None]
  - KNEE DEFORMITY [None]
  - CONTUSION [None]
  - ANGER [None]
  - TREMOR [None]
  - ILL-DEFINED DISORDER [None]
  - MUSCULOSKELETAL STIFFNESS [None]
  - CONVULSION [None]
  - SKIN EXFOLIATION [None]
